FAERS Safety Report 6989938 (Version 1)
Quarter: 2020Q3

REPORT INFORMATION
  Report Type: Report from Study
  Country: CA (occurrence: CA)
  Receive Date: 20090508
  Receipt Date: 20090508
  Transmission Date: 20201105
  Serious: Yes (Hospitalization)
  Sender: FDA-Public Use
  Company Number: CA-JNJFOC-20090407101

PATIENT
  Age: 53 Year
  Sex: Female

DRUGS (3)
  1. INFLIXIMAB [Suspect]
     Active Substance: INFLIXIMAB
     Indication: PSORIASIS
     Route: 042
  2. INFLIXIMAB [Suspect]
     Active Substance: INFLIXIMAB
     Route: 042
  3. IMMUNOMODULATORS [Concomitant]

REACTIONS (2)
  - Metastases to abdominal cavity [Recovered/Resolved]
  - Ovarian epithelial cancer [Recovered/Resolved]

NARRATIVE: CASE EVENT DATE: 20080603
